FAERS Safety Report 11744260 (Version 1)
Quarter: 2015Q4

REPORT INFORMATION
  Report Type: Report from Study
  Country: US (occurrence: None)
  Receive Date: 20151116
  Receipt Date: 20151116
  Transmission Date: 20160304
  Serious: No
  Sender: FDA-Public Use
  Company Number: US-MDT-ADR-2015-02160

PATIENT
  Age: 44 Year
  Sex: Female

DRUGS (2)
  1. BUPIVACAINE INTRATHECAL (30 MG/ML) [Suspect]
     Active Substance: BUPIVACAINE
     Dosage: 4.993 MG/DAY
  2. BACLOFEN INTRATHECAL (300 MCG/ML) [Suspect]
     Active Substance: BACLOFEN
     Indication: PAIN
     Dosage: 49.93 MCG/DAY

REACTIONS (5)
  - Paraesthesia [None]
  - Burning sensation [None]
  - Erythema [None]
  - Skin burning sensation [None]
  - Oral mucosal blistering [None]
